FAERS Safety Report 19503490 (Version 2)
Quarter: 2021Q3

REPORT INFORMATION
  Report Type: Report from Study
  Country: None (occurrence: SE)
  Receive Date: 20210708
  Receipt Date: 20210713
  Transmission Date: 20211014
  Serious: Yes (Hospitalization, Other)
  Sender: FDA-Public Use
  Company Number: SE-ABBVIE-21K-150-3979287-00

PATIENT
  Age: 75 Year
  Sex: Female

DRUGS (2)
  1. DUODOPA [Suspect]
     Active Substance: CARBIDOPA\LEVODOPA
     Indication: PARKINSON^S DISEASE
     Dosage: THERAPY DURATION: REMAINS AT 16H
     Route: 050
     Dates: start: 20141015
  2. DUODOPA [Suspect]
     Active Substance: CARBIDOPA\LEVODOPA

REACTIONS (21)
  - Malaise [Unknown]
  - Stoma site discharge [Not Recovered/Not Resolved]
  - Device dislocation [Unknown]
  - Freezing phenomenon [Unknown]
  - Dysphagia [Unknown]
  - Intentional device misuse [Unknown]
  - Stoma complication [Not Recovered/Not Resolved]
  - Abdominal pain upper [Not Recovered/Not Resolved]
  - Ileus paralytic [Unknown]
  - Infection [Not Recovered/Not Resolved]
  - Anaemia [Not Recovered/Not Resolved]
  - Parkinson^s disease [Not Recovered/Not Resolved]
  - Spondylitis [Unknown]
  - Medical device site mass [Unknown]
  - Dementia [Not Recovered/Not Resolved]
  - Stoma complication [Not Recovered/Not Resolved]
  - Mastication disorder [Not Recovered/Not Resolved]
  - Palliative care [Not Recovered/Not Resolved]
  - C-reactive protein increased [Unknown]
  - Iron deficiency [Not Recovered/Not Resolved]
  - Thrombosis [Unknown]

NARRATIVE: CASE EVENT DATE: 202107
